FAERS Safety Report 9460766 (Version 4)
Quarter: 2014Q2

REPORT INFORMATION
  Report Type: Spontaneous
  Country: US (occurrence: US)
  Receive Date: 20130815
  Receipt Date: 20140411
  Transmission Date: 20141212
  Serious: Yes (Other)
  Sender: FDA-Public Use
  Company Number: US-GLAXOSMITHKLINE-A1037766A

PATIENT
  Sex: Female

DRUGS (1)
  1. FLOLAN [Suspect]
     Indication: COR PULMONALE CHRONIC
     Dosage: 4NGKM CONTINUOUS
     Route: 042
     Dates: start: 20130718

REACTIONS (8)
  - Diabetes mellitus [Unknown]
  - Catheter site discharge [Recovered/Resolved]
  - Catheter site erythema [Recovered/Resolved]
  - Impaired healing [Recovered/Resolved]
  - Skin infection [Recovered/Resolved]
  - Application site pruritus [Unknown]
  - Ear discomfort [Not Recovered/Not Resolved]
  - Nasopharyngitis [Not Recovered/Not Resolved]
